FAERS Safety Report 6860519-0 (Version None)
Quarter: 2010Q3

REPORT INFORMATION
  Report Type: 
  Country: None (occurrence: None)
  Receive Date: 20100720
  Receipt Date: 20100712
  Transmission Date: 20110219
  Serious: Yes (Death, Hospitalization)
  Sender: FDA-Public Use
  Company Number: A0870955A

PATIENT
  Age: 59 Year
  Sex: Male

DRUGS (1)
  1. AVANDIA [Suspect]
     Dosage: 8MG PER DAY
     Route: 048
     Dates: start: 20000223, end: 20080109

REACTIONS (5)
  - AMNESIA [None]
  - ANAEMIA [None]
  - CARDIAC ARREST [None]
  - HEPATIC FAILURE [None]
  - RENAL FAILURE [None]
